FAERS Safety Report 11737227 (Version 1)
Quarter: 2015Q4

REPORT INFORMATION
  Report Type: Spontaneous
  Country: US (occurrence: US)
  Receive Date: 20151113
  Receipt Date: 20151113
  Transmission Date: 20160304
  Serious: No
  Sender: FDA-Public Use
  Company Number: US-TAKEDA-2015TUS015873

PATIENT
  Sex: Female
  Weight: 63.49 kg

DRUGS (1)
  1. BRINTELLIX [Suspect]
     Active Substance: VORTIOXETINE HYDROBROMIDE
     Indication: ANXIETY
     Dosage: 10 MG, QD
     Route: 048
     Dates: start: 20151029

REACTIONS (8)
  - Paraesthesia [Not Recovered/Not Resolved]
  - Nightmare [Not Recovered/Not Resolved]
  - Nausea [Recovering/Resolving]
  - Abnormal dreams [Not Recovered/Not Resolved]
  - Movement disorder [Unknown]
  - Insomnia [Recovering/Resolving]
  - Hypoaesthesia [Not Recovered/Not Resolved]
  - Product use issue [Unknown]
